FAERS Safety Report 7792686-9 (Version None)
Quarter: 2011Q4

REPORT INFORMATION
  Report Type: 
  Country: None (occurrence: None)
  Receive Date: 20111003
  Receipt Date: 20110922
  Transmission Date: 20120403
  Serious: Yes (Hospitalization, Disabling)
  Sender: FDA-Public Use
  Company Number: US-MERCK-1105USA02542

PATIENT
  Age: 70 Year
  Sex: Female
  Weight: 75 kg

DRUGS (9)
  1. FOSAMAX [Suspect]
     Indication: OSTEOPOROSIS PROPHYLAXIS
     Route: 048
     Dates: start: 19950101, end: 20080101
  2. CLONIDINE [Concomitant]
     Indication: HYPERTENSION
     Route: 065
     Dates: start: 19910101
  3. FOSAMAX [Suspect]
     Indication: OSTEOPOROSIS
     Route: 048
     Dates: start: 19950101, end: 20080101
  4. PRILOSEC [Concomitant]
     Route: 065
     Dates: start: 20010101, end: 20100401
  5. FUROSEMIDE [Concomitant]
     Indication: FLUID RETENTION
     Dosage: APPROX. 1954 - PRESENT
     Route: 065
  6. FOSAMAX [Suspect]
     Route: 048
     Dates: start: 20080101, end: 20100701
  7. VITAMINS (UNSPECIFIED) [Concomitant]
     Route: 065
     Dates: start: 20000101
  8. FOSAMAX [Suspect]
     Route: 048
     Dates: start: 20080101, end: 20100701
  9. BENICAR [Concomitant]
     Indication: BLOOD PRESSURE
     Route: 065
     Dates: start: 19910101

REACTIONS (23)
  - SPONDYLOLISTHESIS [None]
  - ASTHMA [None]
  - GASTROOESOPHAGEAL REFLUX DISEASE [None]
  - PUBIS FRACTURE [None]
  - HYPOAESTHESIA [None]
  - ANXIETY [None]
  - LUMBAR SPINAL STENOSIS [None]
  - IMPAIRED HEALING [None]
  - DEPRESSION [None]
  - FALL [None]
  - STRESS FRACTURE [None]
  - SYNOVIAL CYST [None]
  - GOUT [None]
  - CONFUSIONAL STATE [None]
  - OEDEMA [None]
  - OSTEOPOROSIS [None]
  - FRACTURED ISCHIUM [None]
  - ARTHRALGIA [None]
  - FEMUR FRACTURE [None]
  - LOW TURNOVER OSTEOPATHY [None]
  - DYSPEPSIA [None]
  - OSTEOPENIA [None]
  - DEEP VEIN THROMBOSIS [None]
